FAERS Safety Report 22029442 (Version 1)
Quarter: 2023Q1

REPORT INFORMATION
  Report Type: Spontaneous
  Country: US (occurrence: None)
  Receive Date: 20230221
  Receipt Date: 20230221
  Transmission Date: 20230418
  Serious: Yes (Other)
  Sender: FDA-Public Use
  Company Number: None

PATIENT
  Age: 30 Year
  Sex: Male
  Weight: 63 kg

DRUGS (2)
  1. ROBOTABLETS [Suspect]
     Active Substance: DEXTROMETHORPHAN
  2. ROBOHBR COUGH SUPPRESSANT [Suspect]
     Active Substance: DEXTROMETHORPHAN HYDROBROMIDE

REACTIONS (7)
  - Parkinsonian gait [None]
  - Memory impairment [None]
  - Paranoia [None]
  - Delusional perception [None]
  - Psychotic disorder [None]
  - Renal failure [None]
  - Drug abuser [None]
